FAERS Safety Report 10461673 (Version 2)
Quarter: 2014Q3

REPORT INFORMATION
  Report Type: Report from Study
  Country: US (occurrence: US)
  Receive Date: 20140918
  Receipt Date: 20140918
  Transmission Date: 20150326
  Serious: Yes (Other)
  Sender: FDA-Public Use
  Company Number: US-ABBVIE-14K-163-1279125-00

PATIENT
  Age: 27 Year
  Sex: Male

DRUGS (7)
  1. NORCO [Concomitant]
     Active Substance: ACETAMINOPHEN\HYDROCODONE BITARTRATE
     Indication: PAIN
     Route: 048
  2. VALIUM [Concomitant]
     Active Substance: DIAZEPAM
     Indication: PAIN
     Route: 048
  3. OXY SOMETHING [Concomitant]
     Indication: PRODUCT USED FOR UNKNOWN INDICATION
  4. HUMIRA [Suspect]
     Active Substance: ADALIMUMAB
     Dates: start: 20140820, end: 20140820
  5. HUMIRA [Suspect]
     Active Substance: ADALIMUMAB
     Indication: CROHN^S DISEASE
     Dates: start: 2000
  6. HUMIRA [Suspect]
     Active Substance: ADALIMUMAB
     Dates: start: 20140903, end: 20140903
  7. HUMIRA [Suspect]
     Active Substance: ADALIMUMAB

REACTIONS (6)
  - Agitation [Not Recovered/Not Resolved]
  - Irritability [Unknown]
  - Anger [Not Recovered/Not Resolved]
  - Weight decreased [Unknown]
  - Suicidal ideation [Unknown]
  - Medical device pain [Unknown]

NARRATIVE: CASE EVENT DATE: 2014
